FAERS Safety Report 23703587 (Version 2)
Quarter: 2024Q2

REPORT INFORMATION
  Report Type: Spontaneous
  Country: US (occurrence: None)
  Receive Date: 20240403
  Receipt Date: 20240415
  Transmission Date: 20240716
  Serious: Yes (Other)
  Sender: FDA-Public Use
  Company Number: 2024A073939

PATIENT
  Age: 26923 Day

DRUGS (1)
  1. SYMBICORT [Suspect]
     Active Substance: BUDESONIDE\FORMOTEROL FUMARATE DIHYDRATE
     Dosage: 80 UG TWO TIMES A DAY
     Route: 055

REACTIONS (11)
  - Pneumonia [Unknown]
  - Asthma [Unknown]
  - Visual impairment [Unknown]
  - Illness [Unknown]
  - Wrong technique in product usage process [Unknown]
  - Upper respiratory tract infection [Unknown]
  - Respiratory tract irritation [Unknown]
  - Extra dose administered [Unknown]
  - Drug dose omission by device [Unknown]
  - Device use issue [Unknown]
  - Device delivery system issue [Unknown]

NARRATIVE: CASE EVENT DATE: 20240126
